FAERS Safety Report 6728231-6 (Version None)
Quarter: 2010Q2

REPORT INFORMATION
  Report Type: 
  Country: None (occurrence: None)
  Receive Date: 20100517
  Receipt Date: 20100507
  Transmission Date: 20101027
  Serious: Yes (Other)
  Sender: FDA-Public Use
  Company Number: JP-BRISTOL-MYERS SQUIBB COMPANY-15102254

PATIENT

DRUGS (2)
  1. PARAPLATIN [Suspect]
     Indication: NON-SMALL CELL LUNG CANCER
     Route: 041
  2. VINCRISTINE [Suspect]
     Indication: NON-SMALL CELL LUNG CANCER
     Dosage: INJECTION

REACTIONS (1)
  - INTERSTITIAL LUNG DISEASE [None]
